FAERS Safety Report 11751982 (Version 2)
Quarter: 2016Q1

REPORT INFORMATION
  Report Type: Spontaneous
  Country: DE (occurrence: DE)
  Receive Date: 20151118
  Receipt Date: 20160129
  Transmission Date: 20160525
  Serious: Yes (Hospitalization)
  Sender: FDA-Public Use
  Company Number: DE-GLAXOSMITHKLINE-DE2015GSK164066

PATIENT
  Age: 28 Year
  Sex: Female

DRUGS (1)
  1. VIANI [Suspect]
     Active Substance: FLUTICASONE PROPIONATE\SALMETEROL XINAFOATE
     Indication: ASTHMA
     Dosage: UNK
     Route: 055
     Dates: start: 201510, end: 20151101

REACTIONS (3)
  - Paresis [Not Recovered/Not Resolved]
  - Fluid retention [Not Recovered/Not Resolved]
  - Hypoaesthesia [Not Recovered/Not Resolved]

NARRATIVE: CASE EVENT DATE: 201510
